FAERS Safety Report 11495860 (Version 3)
Quarter: 2015Q4

REPORT INFORMATION
  Report Type: Spontaneous
  Country: US (occurrence: US)
  Receive Date: 20150911
  Receipt Date: 20151202
  Transmission Date: 20160304
  Serious: Yes (Hospitalization)
  Sender: FDA-Public Use
  Company Number: US-PFIZER INC-2015298520

PATIENT
  Age: 83 Year
  Sex: Female
  Weight: 81 kg

DRUGS (20)
  1. VITAMIN D3 [Concomitant]
     Active Substance: CHOLECALCIFEROL
     Dosage: 1000 IU, DAILY
     Route: 048
     Dates: start: 20131122
  2. DILTIAZEM [Concomitant]
     Active Substance: DILTIAZEM
     Dosage: 180 MG, DAILY (EVERY DAY BEFORE NOON)
     Route: 048
     Dates: start: 20131122
  3. FLUTICASONE/SALMETEROL [Concomitant]
     Dosage: 100-50 UG, 2X/DAY BY INHALATION
     Dates: start: 20131122
  4. WARFARIN SODIUM. [Concomitant]
     Active Substance: WARFARIN SODIUM
     Dosage: 1 MG, DAILY
     Route: 048
     Dates: start: 20131122
  5. CALCIUM CARBONATE W/COLECALCIFEROL/VITAMIN K [Concomitant]
     Dosage: 600MG/200MG, DAILY
     Route: 048
  6. PROVENTIL HFA INH [Concomitant]
     Dosage: 90 UG BY INHALATION, UNK
  7. TEMAZEPAM. [Concomitant]
     Active Substance: TEMAZEPAM
     Dosage: 15 MG, DAILY (EVERY NIGHT)
     Route: 048
  8. ZOFRAN [Concomitant]
     Active Substance: ONDANSETRON HYDROCHLORIDE
     Indication: NAUSEA
     Dosage: 8 MG, EVERY EIGHT HOURS AS NEEDED
     Route: 048
     Dates: start: 20140221
  9. AROMASIN [Suspect]
     Active Substance: EXEMESTANE
     Indication: BREAST CANCER RECURRENT
     Dosage: 25 MG, 1X/DAY
     Route: 048
     Dates: start: 201501
  10. METOPROLOL TARTRATE. [Concomitant]
     Active Substance: METOPROLOL TARTRATE
     Dosage: 50 MG, 2X/DAY
     Route: 048
     Dates: start: 20150625
  11. PRESERVISION AREDS [Concomitant]
     Active Substance: MINERALS\VITAMINS
     Dosage: 1 DF, DAILY
     Route: 048
  12. PULMICORT AERO [Concomitant]
     Dosage: 180 UG, 2X/DAY
  13. SINGULAIR [Concomitant]
     Active Substance: MONTELUKAST SODIUM
     Dosage: 10 MG, DAILY
     Route: 048
     Dates: start: 20150217
  14. BENZONATATE. [Concomitant]
     Active Substance: BENZONATATE
     Dosage: 100 MG, 3X/DAY
     Route: 048
  15. ESCITALOPRAM OXALATE. [Concomitant]
     Active Substance: ESCITALOPRAM OXALATE
     Dosage: 20 MG, DAILY
     Route: 048
     Dates: start: 20150625
  16. POLYETHYLENE GLYCOL 3350. [Concomitant]
     Active Substance: POLYETHYLENE GLYCOL 3350
     Dosage: 17 G, DAILY
     Route: 048
  17. DOK [Concomitant]
     Active Substance: DOCUSATE SODIUM
     Dosage: 100 MG, TWICE DAILY AS NEEDED
     Route: 048
  18. OMEPRAZOLE. [Concomitant]
     Active Substance: OMEPRAZOLE
     Dosage: 20 MG, DAILY
     Route: 048
  19. POTASSIUM CHLORIDE. [Concomitant]
     Active Substance: POTASSIUM CHLORIDE
     Dosage: 20 MEQ, DAILY
     Route: 048
     Dates: start: 20131122
  20. EXEMESTANE. [Concomitant]
     Active Substance: EXEMESTANE
     Dosage: 25 MG, DAILY
     Route: 048
     Dates: start: 20141218

REACTIONS (17)
  - Cardiac failure congestive [Unknown]
  - Mental impairment [Unknown]
  - Muscular weakness [Unknown]
  - Anaemia [Unknown]
  - Neurologic neglect syndrome [Unknown]
  - Amnesia [Unknown]
  - Basilar artery thrombosis [Unknown]
  - Malaise [Unknown]
  - Cerebrovascular accident [Recovering/Resolving]
  - Pneumonia [Unknown]
  - Melaena [Unknown]
  - Chronic obstructive pulmonary disease [Unknown]
  - Bronchitis [Unknown]
  - Pain [Unknown]
  - Erosive oesophagitis [Unknown]
  - Oesophageal candidiasis [Unknown]
  - Staphylococcal infection [Unknown]

NARRATIVE: CASE EVENT DATE: 2015
